FAERS Safety Report 11929066 (Version 2)
Quarter: 2016Q1

REPORT INFORMATION
  Report Type: Spontaneous
  Country: US (occurrence: US)
  Receive Date: 20160120
  Receipt Date: 20160204
  Transmission Date: 20160526
  Serious: No
  Sender: FDA-Public Use
  Company Number: US-TEVA-623029ACC

PATIENT
  Sex: Female
  Weight: 70.37 kg

DRUGS (1)
  1. PARAGARD T 380A [Suspect]
     Active Substance: COPPER
     Indication: CONTRACEPTION
     Dates: start: 20151209, end: 20151228

REACTIONS (3)
  - Menorrhagia [Recovered/Resolved]
  - Vaginal discharge [Unknown]
  - Uterine cervical pain [Recovered/Resolved]
